FAERS Safety Report 8616119-5 (Version None)
Quarter: 2012Q3

REPORT INFORMATION
  Report Type: 
  Country: None (occurrence: None)
  Receive Date: 20120823
  Receipt Date: 20111011
  Transmission Date: 20120928
  Serious: Yes (Death)
  Sender: FDA-Public Use
  Company Number: JP-ROCHE-1004875

PATIENT
  Age: 72 Year
  Sex: Female

DRUGS (3)
  1. BISOPROLOL FUMARATE [Concomitant]
     Dates: start: 20110803
  2. ADALAT CC [Concomitant]
     Dates: start: 20110803
  3. XOLAIR [Suspect]
     Indication: ASTHMA
     Dates: start: 20090914

REACTIONS (1)
  - CEREBRAL INFARCTION [None]
